FAERS Safety Report 6254858-4 (Version None)
Quarter: 2009Q2

REPORT INFORMATION
  Report Type: 
  Country: None (occurrence: None)
  Receive Date: 20090630
  Receipt Date: 20090617
  Transmission Date: 20091009
  Serious: Yes (Hospitalization, Other)
  Sender: FDA-Public Use
  Company Number: 2009AL004172

PATIENT
  Age: 39 Year
  Sex: Male

DRUGS (3)
  1. DIAZEPAM TAB [Suspect]
     Indication: DRUG USE FOR UNKNOWN INDICATION
     Dosage: 5 DF; X1; PO
     Route: 048
     Dates: start: 20090428, end: 20090428
  2. HYDROXYZINE HCL [Suspect]
     Indication: DRUG USE FOR UNKNOWN INDICATION
     Dosage: PO
     Route: 048
     Dates: start: 20090428, end: 20090428
  3. ALCOHOL [Concomitant]

REACTIONS (5)
  - ALCOHOL POISONING [None]
  - SOMNOLENCE [None]
  - SUICIDAL BEHAVIOUR [None]
  - TACHYCARDIA [None]
  - VOMITING [None]
